FAERS Safety Report 9890756 (Version 1)
Quarter: 2014Q1

REPORT INFORMATION
  Report Type: Spontaneous
  Country: US (occurrence: None)
  Receive Date: 20140210
  Receipt Date: 20140210
  Transmission Date: 20141002
  Serious: Yes (Hospitalization)
  Sender: FDA-Public Use
  Company Number: None

PATIENT
  Age: 59 Year
  Sex: Male
  Weight: 58.5 kg

DRUGS (3)
  1. XARELTO 20 MG [Suspect]
     Indication: CEREBROVASCULAR ACCIDENT
     Route: 048
  2. XARELTO 20 MG [Suspect]
     Indication: PROPHYLAXIS
     Route: 048
  3. XARELTO 20 MG [Suspect]
     Indication: ATRIAL FIBRILLATION
     Route: 048

REACTIONS (1)
  - Gastrointestinal ulcer haemorrhage [None]
